FAERS Safety Report 14723301 (Version 1)
Quarter: 2018Q2

REPORT INFORMATION
  Report Type: Spontaneous
  Country: US (occurrence: US)
  Receive Date: 20180405
  Receipt Date: 20180405
  Transmission Date: 20180711
  Serious: No
  Sender: FDA-Public Use
  Company Number: US-BAYER-2018-065979

PATIENT

DRUGS (2)
  1. ALEVE [Suspect]
     Active Substance: NAPROXEN SODIUM
     Indication: MUSCULOSKELETAL STIFFNESS
  2. ALEVE [Suspect]
     Active Substance: NAPROXEN SODIUM
     Indication: DYSMENORRHOEA

REACTIONS (1)
  - Therapeutic response unexpected [Unknown]
